FAERS Safety Report 26199000 (Version 1)
Quarter: 2025Q4

REPORT INFORMATION
  Report Type: Report from Study
  Country: US (occurrence: US)
  Receive Date: 20251225
  Receipt Date: 20251225
  Transmission Date: 20260118
  Serious: Yes (Other)
  Sender: ROCHE
  Company Number: US-ROCHE-10000463768

PATIENT
  Age: 71 Year
  Sex: Male

DRUGS (2)
  1. AVASTIN [Suspect]
     Active Substance: BEVACIZUMAB
     Indication: Melaena
     Dosage: 400MG ADMINISTERED IV OVER 30 MINS ON DAY 1 OF EVERY 28 DAY CYCLE
     Route: 042
  2. AVASTIN [Suspect]
     Active Substance: BEVACIZUMAB
     Indication: Chronic lymphocytic leukaemia

REACTIONS (24)
  - Bacteraemia [Unknown]
  - Lung neoplasm malignant [Unknown]
  - Iron deficiency anaemia [Unknown]
  - Peripheral swelling [Unknown]
  - Peripheral arterial occlusive disease [Unknown]
  - Alport^s syndrome [Unknown]
  - Haematuria [Unknown]
  - Abdominal distension [Unknown]
  - Cyst [Unknown]
  - Oesophagitis [Unknown]
  - Fatigue [Unknown]
  - Insomnia [Unknown]
  - Hepatic mass [Unknown]
  - Rectal haemorrhage [Unknown]
  - Depression [Unknown]
  - Oedema peripheral [Unknown]
  - Tooth abscess [Unknown]
  - Restless legs syndrome [Unknown]
  - Diarrhoea [Unknown]
  - Chest pain [Unknown]
  - Hyponatraemia [Unknown]
  - Heart failure with preserved ejection fraction [Unknown]
  - Fall [Unknown]
  - Off label use [Unknown]
